FAERS Safety Report 21228996 (Version 1)
Quarter: 2022Q3

REPORT INFORMATION
  Report Type: Spontaneous
  Country: IN (occurrence: IN)
  Receive Date: 20220818
  Receipt Date: 20220818
  Transmission Date: 20221027
  Serious: Yes (Hospitalization)
  Sender: FDA-Public Use
  Company Number: IN-ABBVIE-22K-078-4487780-00

PATIENT
  Age: 13 Year
  Sex: Male

DRUGS (1)
  1. VALPROATE SODIUM [Suspect]
     Active Substance: VALPROATE SODIUM
     Indication: Generalised tonic-clonic seizure
     Route: 048

REACTIONS (1)
  - Pancreatitis acute [Recovered/Resolved]
